FAERS Safety Report 15689442 (Version 2)
Quarter: 2019Q1

REPORT INFORMATION
  Report Type: Spontaneous
  Country: US (occurrence: US)
  Receive Date: 20181205
  Receipt Date: 20190123
  Transmission Date: 20190417
  Serious: Yes (Other)
  Sender: FDA-Public Use
  Company Number: US-PFIZER INC-2018472687

PATIENT
  Age: 59 Year
  Sex: Female

DRUGS (4)
  1. ADALIMUMAB [Concomitant]
     Active Substance: ADALIMUMAB
     Indication: RHEUMATOID ARTHRITIS
     Dosage: UNK
  2. PREDNISONE. [Concomitant]
     Active Substance: PREDNISONE
     Indication: RHEUMATOID ARTHRITIS
     Dosage: UNK
  3. NAPROXEN SODIUM. [Concomitant]
     Active Substance: NAPROXEN SODIUM
     Indication: RHEUMATOID ARTHRITIS
     Dosage: UNK
  4. METHOTREXATE SODIUM. [Suspect]
     Active Substance: METHOTREXATE SODIUM
     Indication: RHEUMATOID ARTHRITIS
     Dosage: 20 MG, WEEKLY (PATIENT^S LAST DOSE ADMINISTERED FIVE DAYS PRIOR TO LAB DRAW)

REACTIONS (5)
  - Toxicity to various agents [Recovered/Resolved]
  - Pancytopenia [Recovered/Resolved]
  - Rash erythematous [Recovered/Resolved]
  - Hepatitis acute [Recovered/Resolved]
  - Mucosal inflammation [Recovered/Resolved]
